APPROVED DRUG PRODUCT: IMAGENT
Active Ingredient: DIMYRISTOYL LECITHIN; PERFLEXANE
Strength: 0.92MG/VIAL;0.092MG/VIAL
Dosage Form/Route: INJECTABLE;INTRAVENOUS
Application: N021191 | Product #001
Applicant: VESSELON SPV LLC
Approved: May 31, 2002 | RLD: No | RS: No | Type: DISCN